FAERS Safety Report 17237514 (Version 3)
Quarter: 2020Q1

REPORT INFORMATION
  Report Type: Spontaneous
  Country: US (occurrence: US)
  Receive Date: 20200106
  Receipt Date: 20200203
  Transmission Date: 20200409
  Serious: No
  Sender: FDA-Public Use
  Company Number: US-PFIZER INC-2018375084

PATIENT
  Age: 64 Year
  Sex: Female

DRUGS (4)
  1. LYRICA [Suspect]
     Active Substance: PREGABALIN
     Indication: PAIN
  2. LYRICA [Suspect]
     Active Substance: PREGABALIN
     Indication: PAIN
     Dosage: 400 MG, DAILY (TAKE 1 CAPSULE IN AM, TAKE 1 CAPSULE AT NOON AND 2 CAPSULES AT NIGHT)
     Dates: start: 20180913
  3. LYRICA [Suspect]
     Active Substance: PREGABALIN
     Indication: CEREBRAL PALSY
     Dosage: 400 MG, DAILY (TAKE 1 CAPSULE IN AM, TAKE 1 CAPSULE AT NOON AND 2 CAPSULES AT NIGHT)
     Dates: start: 20190311
  4. LYRICA [Suspect]
     Active Substance: PREGABALIN
     Indication: NEUROPATHY PERIPHERAL
     Dosage: 300 MG, DAILY (1 CAPSULE BY MOUTH IN THE MORNING AND 2 CAPS AT BED TIME)
     Route: 048

REACTIONS (1)
  - Visual impairment [Unknown]
